FAERS Safety Report 9099957 (Version 1)
Quarter: 2013Q1

REPORT INFORMATION
  Report Type: Spontaneous
  Country: US (occurrence: US)
  Receive Date: 20130215
  Receipt Date: 20130215
  Transmission Date: 20140127
  Serious: No
  Sender: FDA-Public Use
  Company Number: US-VERTEX PHARMACEUTICALS INC.-2013-002051

PATIENT
  Age: 61 Year
  Sex: Male
  Weight: 91 kg

DRUGS (6)
  1. INCIVEK [Suspect]
     Indication: HEPATITIS C
     Dosage: UNK
     Route: 048
     Dates: end: 20121008
  2. INCIVEK [Suspect]
     Dosage: 750 MG, TID
     Route: 048
     Dates: start: 20130127
  3. RIBAVIRIN [Suspect]
     Indication: HEPATITIS C
     Dosage: UNK
     Dates: end: 20121008
  4. RIBAVIRIN [Suspect]
     Dosage: 600MG QAM, 400MG QPM
     Route: 048
     Dates: start: 20130127
  5. PEGASYS [Suspect]
     Indication: HEPATITIS C
     Dosage: UNK
     Dates: end: 20121008
  6. PEGASYS [Suspect]
     Dosage: 180 ?G, QW
     Route: 058
     Dates: start: 20130127

REACTIONS (5)
  - Pneumonia [Recovered/Resolved]
  - Vertigo [Recovered/Resolved]
  - Lip dry [Unknown]
  - Lip exfoliation [Not Recovered/Not Resolved]
  - Pruritus [Not Recovered/Not Resolved]
